FAERS Safety Report 8884207 (Version 1)
Quarter: 2012Q4

REPORT INFORMATION
  Report Type: 
  Country: US (occurrence: US)
  Receive Date: 20121102
  Receipt Date: 20121102
  Transmission Date: 20130627
  Serious: Yes (Other)
  Sender: FDA-Public Use
  Company Number: US-ROCHE-1149891

PATIENT
  Sex: Male

DRUGS (28)
  1. ACTEMRA [Suspect]
     Indication: RHEUMATOID ARTHRITIS
     Route: 042
     Dates: start: 20120824
  2. OXYCONTIN [Concomitant]
     Route: 065
     Dates: start: 20120321
  3. OXYCONTIN [Concomitant]
     Route: 065
     Dates: start: 20120524
  4. OXYCONTIN [Concomitant]
     Route: 065
     Dates: start: 20120824
  5. PREDNISOLONE [Concomitant]
     Route: 065
     Dates: start: 20120321
  6. PREDNISOLONE [Concomitant]
     Route: 065
     Dates: start: 20120718
  7. PREDNISOLONE [Concomitant]
     Route: 065
     Dates: start: 20120807
  8. KENALOG [Concomitant]
     Route: 030
  9. MELOXICAM [Concomitant]
  10. LISINOPRIL [Concomitant]
     Route: 065
  11. ASPIRIN [Concomitant]
     Route: 065
     Dates: start: 20120220
  12. OXYCODONE/APAP [Concomitant]
  13. VIMOVO [Concomitant]
     Route: 065
  14. FOLIC ACID [Concomitant]
     Route: 065
  15. FLOMAX [Concomitant]
     Route: 065
     Dates: start: 20120723
  16. LOVENOX [Concomitant]
  17. FOLVITE [Concomitant]
  18. NEURONTIN [Concomitant]
     Route: 065
     Dates: start: 20120524
  19. NEURONTIN [Concomitant]
     Route: 065
  20. PRINIVIL [Concomitant]
  21. NAPROSYN [Concomitant]
  22. ZOFRAN [Concomitant]
  23. DELTASONE [Concomitant]
  24. ZESTRIL [Concomitant]
  25. VITAMIN B-100 [Concomitant]
  26. CIPRO [Concomitant]
     Route: 065
  27. CYMBALTA [Concomitant]
     Route: 065
     Dates: start: 20120622
  28. JALYN [Concomitant]

REACTIONS (15)
  - Anaphylactic reaction [Unknown]
  - Renal failure chronic [Unknown]
  - Urinary hesitation [Unknown]
  - Pruritus [Unknown]
  - Dyspnoea [Recovered/Resolved]
  - Hypotension [Unknown]
  - Fatigue [Unknown]
  - Muscular weakness [Unknown]
  - Muscle spasms [Unknown]
  - Skin lesion [Unknown]
  - Skin mass [Unknown]
  - Testicular swelling [Unknown]
  - Somnolence [Unknown]
  - Chest pain [Unknown]
  - Rash [Unknown]
